FAERS Safety Report 8121986-8 (Version None)
Quarter: 2012Q1

REPORT INFORMATION
  Report Type: 
  Country: None (occurrence: None)
  Receive Date: 20120208
  Receipt Date: 20120131
  Transmission Date: 20120608
  Serious: No
  Sender: FDA-Public Use
  Company Number: US-B.I. PHARMACEUTICALS,INC./RIDGEFIELD-2012-BP-01913BP

PATIENT
  Sex: Male

DRUGS (7)
  1. NORVASC [Concomitant]
     Indication: BLOOD PRESSURE
  2. SYNTHROID [Concomitant]
     Indication: HYPOTHYROIDISM
  3. ATENOLOL [Concomitant]
     Indication: CARDIAC DISORDER
  4. AVODART [Concomitant]
     Indication: PROSTATIC DISORDER
  5. PRADAXA [Suspect]
     Indication: ATRIAL FIBRILLATION
     Dosage: 300 MG
     Route: 048
     Dates: start: 20111101
  6. LIPITOR [Concomitant]
     Indication: BLOOD CHOLESTEROL INCREASED
  7. FLOMAX [Concomitant]
     Indication: PROSTATIC DISORDER

REACTIONS (2)
  - DIZZINESS [None]
  - DYSPEPSIA [None]
